FAERS Safety Report 8142824-3 (Version None)
Quarter: 2012Q1

REPORT INFORMATION
  Report Type: 
  Country: None (occurrence: None)
  Receive Date: 20120216
  Receipt Date: 20120207
  Transmission Date: 20120608
  Serious: Yes (Congenital Anomaly, Other)
  Sender: FDA-Public Use
  Company Number: US-ABBOTT-11P-163-0857912-00

PATIENT
  Sex: Female
  Weight: 2.86 kg

DRUGS (4)
  1. COMBIVIR [Concomitant]
     Indication: MATERNAL EXPOSURE TIMING UNSPECIFIED
     Route: 064
     Dates: start: 20110304
  2. METRONIDAZOLE [Concomitant]
     Indication: VULVOVAGINITIS TRICHOMONAL
     Route: 064
  3. KALETRA [Suspect]
     Indication: MATERNAL EXPOSURE TIMING UNSPECIFIED
     Route: 064
     Dates: start: 20110304
  4. MULTI-VITAMINS [Concomitant]
     Indication: PREGNANCY
     Route: 064

REACTIONS (2)
  - FOETAL EXPOSURE DURING PREGNANCY [None]
  - MASS [None]
